FAERS Safety Report 4813895-4 (Version None)
Quarter: 2005Q4

REPORT INFORMATION
  Report Type: 
  Country: None (occurrence: None)
  Receive Date: 20051028
  Receipt Date: 20050404
  Transmission Date: 20060501
  Serious: No
  Sender: FDA-Public Use
  Company Number: US-GLAXOSMITHKLINE-A0552599A

PATIENT
  Sex: Male

DRUGS (12)
  1. ADVAIR DISKUS 100/50 [Suspect]
     Route: 055
     Dates: end: 20041001
  2. FLOVENT [Suspect]
     Indication: DRUG USE FOR UNKNOWN INDICATION
     Route: 055
  3. HUMALOG [Concomitant]
  4. ASPIRIN [Concomitant]
  5. ATACAND [Concomitant]
  6. FUROSEMIDE [Concomitant]
  7. UNKNOWN MEDICATION [Concomitant]
  8. LIPITOR [Concomitant]
  9. OMEPRAZOLE [Concomitant]
  10. TOPROL-XL [Concomitant]
  11. WARFARIN SODIUM [Concomitant]
  12. VITAMIN SUPPLEMENTS [Concomitant]

REACTIONS (2)
  - BLOOD GLUCOSE INCREASED [None]
  - INCREASED INSULIN REQUIREMENT [None]
